FAERS Safety Report 6839298-9 (Version None)
Quarter: 2010Q3

REPORT INFORMATION
  Report Type: 
  Country: None (occurrence: None)
  Receive Date: 20100714
  Receipt Date: 20100630
  Transmission Date: 20110219
  Serious: Yes (Other)
  Sender: FDA-Public Use
  Company Number: PHEH2010US00941

PATIENT
  Sex: Male

DRUGS (5)
  1. EXJADE [Suspect]
     Indication: HAEMOCHROMATOSIS
     Dosage: 625 MG, DAILY
     Route: 048
     Dates: start: 20091130
  2. EXJADE [Suspect]
     Dosage: 1250 MG, QD
     Route: 048
  3. NADOLOL [Concomitant]
     Dosage: 20 MG DAILY
     Route: 048
  4. MECLIZINE [Concomitant]
     Dosage: 25 MG, BID
     Route: 048
  5. ACETAZOLAMIDE [Concomitant]
     Dosage: 250 MG, BID
     Route: 048

REACTIONS (4)
  - ARTHROPATHY [None]
  - DIARRHOEA [None]
  - PHOTOSENSITIVITY REACTION [None]
  - WRONG TECHNIQUE IN DRUG USAGE PROCESS [None]
